FAERS Safety Report 4996592-4 (Version None)
Quarter: 2006Q2

REPORT INFORMATION
  Report Type: 
  Country: None (occurrence: None)
  Receive Date: 20060505
  Receipt Date: 20060426
  Transmission Date: 20061013
  Serious: Yes (Disabling, Other)
  Sender: FDA-Public Use
  Company Number: 2006057179

PATIENT
  Sex: Male
  Weight: 86.637 kg

DRUGS (6)
  1. VIRACEPT [Suspect]
     Indication: HIV INFECTION
     Dosage: 2500 MG (625 MG, 2 IN 1 D), ORAL
     Route: 048
  2. ANTIHYPERTENSIVES (ANTIHYPERTENSIVES) [Suspect]
     Indication: HYPERTENSION
     Dates: start: 20030101
  3. VIDEX [Concomitant]
  4. EPIVIR [Concomitant]
  5. VIREAD [Concomitant]
  6. ZERIT [Concomitant]

REACTIONS (10)
  - BLOOD CHOLESTEROL INCREASED [None]
  - BLOOD TRIGLYCERIDES INCREASED [None]
  - CHEST PAIN [None]
  - HYPERTENSION [None]
  - ISCHAEMIA [None]
  - LOSS OF EMPLOYMENT [None]
  - MALAISE [None]
  - MEMORY IMPAIRMENT [None]
  - SOMNOLENCE [None]
  - STRESS [None]
